FAERS Safety Report 14600797 (Version 1)
Quarter: 2018Q1

REPORT INFORMATION
  Report Type: Spontaneous
  Country: US (occurrence: US)
  Receive Date: 20180303
  Receipt Date: 20180303
  Transmission Date: 20180509
  Serious: No
  Sender: FDA-Public Use
  Company Number: None

PATIENT
  Age: 50 Year
  Sex: Male
  Weight: 75.2 kg

DRUGS (7)
  1. FOLIC ACID. [Concomitant]
     Active Substance: FOLIC ACID
  2. ACYCLOVIR (ZOVIRAX) [Concomitant]
  3. MIRALAX [Concomitant]
     Active Substance: POLYETHYLENE GLYCOL 3350
  4. BLINATUMOMAB [Suspect]
     Active Substance: BLINATUMOMAB
  5. ALLIOPURINOL (ZYLOPRIM) [Concomitant]
  6. CIPRO [Concomitant]
     Active Substance: CIPROFLOXACIN HYDROCHLORIDE
  7. DIFLUCAN [Concomitant]
     Active Substance: FLUCONAZOLE

REACTIONS (5)
  - Adjustment disorder [None]
  - Liver function test increased [None]
  - Anxiety [None]
  - Hepatic steatosis [None]
  - Back pain [None]
